FAERS Safety Report 12613974 (Version 1)
Quarter: 2016Q3

REPORT INFORMATION
  Report Type: Spontaneous
  Country: US (occurrence: US)
  Receive Date: 20160802
  Receipt Date: 20160802
  Transmission Date: 20161109
  Serious: No
  Sender: FDA-Public Use
  Company Number: US-PFIZER INC-2016365347

PATIENT
  Age: 62 Year

DRUGS (16)
  1. ADVAIR HFA [Concomitant]
     Active Substance: FLUTICASONE PROPIONATE\SALMETEROL XINAFOATE
     Dosage: 250-50 MCG/DOSE, 1 PUFF TWO TIMES A DAY
     Route: 055
  2. MOTRIN [Concomitant]
     Active Substance: IBUPROFEN
     Dosage: 1 TABLET (200 MG TOTAL) EVERY 6 HOURS AS NEEDED
  3. PROVENTIL HFA [Concomitant]
     Active Substance: ALBUTEROL SULFATE
     Dosage: AS NEEDED (90 MCG PUFF, 2 PUFF BY INHALATION ROUTE EVERY 4-6 HOURS)
     Route: 055
  4. VENTOLIN HFA [Concomitant]
     Active Substance: ALBUTEROL SULFATE
     Dosage: AS NEEDED (90 MCG PUFF, 2 PUFF BY INHALATION ROUTE EVERY 4-6 HOURS)
     Route: 055
  5. ADVIL [Concomitant]
     Active Substance: IBUPROFEN
     Dosage: 1 TABLET (200 MG TOTAL) EVERY 6 HOURS AS NEEDED
     Route: 048
  6. ZESTRIL [Concomitant]
     Active Substance: LISINOPRIL
     Dosage: 1 TABLET (20 MG TOTAL), DAILY
     Route: 048
  7. LYRICA [Suspect]
     Active Substance: PREGABALIN
     Dosage: 75 MG, 2X/DAY, [1 CAPSULE (75MG TOTAL) BY MOUTH TWO TIMES A DAY]
     Route: 048
     Dates: start: 20160715
  8. PRINIVIL [Concomitant]
     Active Substance: LISINOPRIL
     Dosage: 1 TABLET (20 MG TOTAL), DAILY
     Route: 048
  9. ALBUTEROL. [Concomitant]
     Active Substance: ALBUTEROL
     Dosage: 2.5MG/3ML (0.083%), 3 ML BY NEBULIZATION EVERY 4 HOURS AS NEEDED
     Route: 055
  10. NORCO [Concomitant]
     Active Substance: ACETAMINOPHEN\HYDROCODONE BITARTRATE
     Dosage: 5 - 325 MG, 1-2 TABLET EVERY 6 HOURS AS NEEDED
     Route: 048
  11. SYNTHROID [Concomitant]
     Active Substance: LEVOTHYROXINE SODIUM
     Dosage: 1 TABLET (88 UG TOTAL), DAILY
     Route: 048
  12. FLEXERIL [Concomitant]
     Active Substance: CYCLOBENZAPRINE HYDROCHLORIDE
     Indication: MUSCLE SPASMS
     Dosage: 1 TABLET (10 MG TOTAL) BY MOUTH NIGHTLY AS NEEDED
     Route: 048
  13. THERAGRAN [Concomitant]
     Active Substance: VITAMINS
     Dosage: 1 TABLET, DAILY
     Route: 048
  14. LEVOTHROID [Concomitant]
     Active Substance: LEVOTHYROXINE SODIUM
     Dosage: 1 TABLET (88 UG TOTAL), DAILY
     Route: 048
  15. MEVACOR [Concomitant]
     Active Substance: LOVASTATIN
     Dosage: 1 TABLET (20 MG TOTAL), DAILY
     Route: 048
  16. PROZAC [Concomitant]
     Active Substance: FLUOXETINE HYDROCHLORIDE
     Dosage: 20 MG (TOTAL), DAILY
     Route: 048

REACTIONS (2)
  - Documented hypersensitivity to administered product [Unknown]
  - Drug hypersensitivity [Unknown]

NARRATIVE: CASE EVENT DATE: 20160715
